FAERS Safety Report 9233153 (Version 1)
Quarter: 2013Q2

REPORT INFORMATION
  Report Type: Spontaneous
  Country: DE (occurrence: DE)
  Receive Date: 20130416
  Receipt Date: 20130416
  Transmission Date: 20140414
  Serious: Yes (Other)
  Sender: FDA-Public Use
  Company Number: PHHY2013DE036623

PATIENT
  Age: 79 Year
  Sex: Female

DRUGS (1)
  1. TASIGNA [Suspect]
     Dosage: 600 MG, PER DAY
     Route: 048
     Dates: start: 20130322, end: 20130326

REACTIONS (5)
  - Electrocardiogram QT prolonged [Unknown]
  - Blood bilirubin increased [Unknown]
  - Vomiting [Unknown]
  - Cough [Unknown]
  - Blood lactate dehydrogenase increased [Unknown]
